FAERS Safety Report 6535338-5 (Version None)
Quarter: 2010Q1

REPORT INFORMATION
  Report Type: 
  Country: None (occurrence: None)
  Receive Date: 20100113
  Receipt Date: 20100111
  Transmission Date: 20100710
  Serious: Yes (Hospitalization)
  Sender: FDA-Public Use
  Company Number: NZ-ROCHE-678744

PATIENT
  Sex: Male

DRUGS (2)
  1. RIVOTRIL [Suspect]
     Indication: DRUG USE FOR UNKNOWN INDICATION
     Dosage: FREQUENCY: DAILY
     Route: 048
     Dates: start: 19991104, end: 19991104
  2. CLOZAPINE [Interacting]
     Indication: DRUG USE FOR UNKNOWN INDICATION
     Dosage: FREQUENCY: DAILY
     Route: 048
     Dates: start: 19991104, end: 19991104

REACTIONS (5)
  - COMA [None]
  - DRUG INTERACTION [None]
  - HYPOTENSION [None]
  - MIOSIS [None]
  - PYREXIA [None]
